FAERS Safety Report 4837005-2 (Version None)
Quarter: 2005Q4

REPORT INFORMATION
  Report Type: 
  Country: None (occurrence: None)
  Receive Date: 20051121
  Receipt Date: 20051107
  Transmission Date: 20060501
  Serious: Yes (Hospitalization, Other)
  Sender: FDA-Public Use
  Company Number: HQWYE501211NOV05

PATIENT
  Age: 35 Year
  Sex: Male

DRUGS (5)
  1. RAPAMUNE [Suspect]
     Indication: PROPHYLAXIS AGAINST TRANSPLANT REJECTION
     Dosage: 3 MG 1X PER 1 DAY, ORAL
     Route: 048
     Dates: start: 20041217, end: 20040114
  2. RAPAMUNE [Suspect]
     Dosage: 4 MG 1X PER 1 DAY, ORAL
     Route: 048
     Dates: start: 20050115
  3. CYCLOSPORINE [Concomitant]
  4. PREDNISONE [Concomitant]
  5. SULFAMETHOXAZOLE + TRIMETHOPRIM [Concomitant]

REACTIONS (3)
  - DRUG INEFFECTIVE [None]
  - KIDNEY TRANSPLANT REJECTION [None]
  - RENAL TUBULAR NECROSIS [None]
